FAERS Safety Report 18253789 (Version 1)
Quarter: 2020Q3

REPORT INFORMATION
  Report Type: Report from Study
  Country: US (occurrence: US)
  Receive Date: 20200910
  Receipt Date: 20200910
  Transmission Date: 20201103
  Serious: Yes (Death, Other)
  Sender: FDA-Public Use
  Company Number: US-CHIESI USA, INC.-US-2020CHI000576

PATIENT

DRUGS (2)
  1. KENGREAL [Suspect]
     Active Substance: CANGRELOR
     Dosage: 4 UNK
     Route: 042
     Dates: start: 20191010, end: 20191015
  2. KENGREAL [Suspect]
     Active Substance: CANGRELOR
     Indication: PERCUTANEOUS CORONARY INTERVENTION
     Dosage: 30 ?G/KG, SINGLE
     Route: 040
     Dates: start: 20191010, end: 20191010

REACTIONS (3)
  - Incorrect product administration duration [Fatal]
  - Multiple organ dysfunction syndrome [Fatal]
  - Cardiogenic shock [Unknown]

NARRATIVE: CASE EVENT DATE: 20191010
